FAERS Safety Report 7300139-7 (Version None)
Quarter: 2011Q1

REPORT INFORMATION
  Report Type: 
  Country: None (occurrence: None)
  Receive Date: 20110217
  Receipt Date: 20110208
  Transmission Date: 20110831
  Serious: Yes (Hospitalization)
  Sender: FDA-Public Use
  Company Number: US-BIOGENIDEC-2011BI001943

PATIENT
  Age: 46 Year
  Sex: Male

DRUGS (2)
  1. TYSABRI [Suspect]
     Indication: PRODUCT USED FOR UNKNOWN INDICATION
     Dates: start: 20040101, end: 20050101
  2. TYSABRI [Suspect]
     Route: 042
     Dates: start: 20060101, end: 20100101

REACTIONS (2)
  - PYREXIA [None]
  - VIRAL CARDIOMYOPATHY [None]
